FAERS Safety Report 7093043-3 (Version None)
Quarter: 2010Q4

REPORT INFORMATION
  Report Type: 
  Country: None (occurrence: None)
  Receive Date: 20101110
  Receipt Date: 20101027
  Transmission Date: 20110411
  Serious: Yes (Other)
  Sender: FDA-Public Use
  Company Number: US-RB-014742-10

PATIENT
  Age: 43 Year
  Sex: Female

DRUGS (1)
  1. DELSYM [Suspect]
     Route: 048
     Dates: end: 20101024

REACTIONS (1)
  - HYPERTENSION [None]
